FAERS Safety Report 22390108 (Version 1)
Quarter: 2023Q2

REPORT INFORMATION
  Report Type: Spontaneous
  Country: US (occurrence: None)
  Receive Date: 20230530
  Receipt Date: 20230530
  Transmission Date: 20230721
  Serious: Yes (Hospitalization)
  Sender: FDA-Public Use
  Company Number: None

PATIENT
  Age: 57 Year
  Sex: Female
  Weight: 72.9 kg

DRUGS (7)
  1. INVEGA SUSTENNA [Suspect]
     Active Substance: PALIPERIDONE PALMITATE
     Indication: Post-traumatic stress disorder
     Dosage: OTHER QUANTITY : 1 INJECTION(S);?OTHER FREQUENCY : ONCE A MONTH;?
     Route: 030
  2. SODIUM CHLORIDE [Concomitant]
     Active Substance: SODIUM CHLORIDE
  3. AMLODIPINE [Concomitant]
     Active Substance: AMLODIPINE BESYLATE
  4. PRAZOSIN [Concomitant]
     Active Substance: PRAZOSIN
  5. MAGNESIUM [Concomitant]
     Active Substance: MAGNESIUM
  6. VITAMINS [Concomitant]
     Active Substance: VITAMINS
  7. botswellia seratta [Concomitant]

REACTIONS (11)
  - Joint swelling [None]
  - Peripheral swelling [None]
  - Tachyphrenia [None]
  - Obsessive thoughts [None]
  - Insomnia [None]
  - Weight decreased [None]
  - Arthritis [None]
  - Mobility decreased [None]
  - Palpitations [None]
  - Anxiety [None]
  - Cardiac disorder [None]

NARRATIVE: CASE EVENT DATE: 20221001
